FAERS Safety Report 14194491 (Version 1)
Quarter: 2017Q4

REPORT INFORMATION
  Report Type: Spontaneous
  Country: US (occurrence: US)
  Receive Date: 20171115
  Receipt Date: 20171115
  Transmission Date: 20180321
  Serious: Yes (Other)
  Sender: FDA-Public Use
  Company Number: None

PATIENT
  Weight: 111.15 kg

DRUGS (9)
  1. SILDENAFIL. [Concomitant]
     Active Substance: SILDENAFIL
  2. AMLODIPINE BESYLATE, GENERIC FOR NORVASC [Suspect]
     Active Substance: AMLODIPINE BESYLATE
     Indication: HYPERTENSION
     Dosage: ?          QUANTITY:100 TABLET(S);?
     Route: 048
     Dates: start: 20171104, end: 20171105
  3. LOW-DOSE ASPIRIN [Concomitant]
     Active Substance: ASPIRIN
  4. PIOGLITAZONE. [Concomitant]
     Active Substance: PIOGLITAZONE
  5. METFORMIN [Concomitant]
     Active Substance: METFORMIN HYDROCHLORIDE
  6. LISINOPRIL/WITH HYDROCHLOROTHIAZIDE [Concomitant]
  7. GLIPIZIDE. [Concomitant]
     Active Substance: GLIPIZIDE
  8. LATANOPROST OPHTHALMIC SOLUTION [Concomitant]
     Active Substance: LATANOPROST
  9. LOVASTATIN. [Concomitant]
     Active Substance: LOVASTATIN

REACTIONS (6)
  - Incoherent [None]
  - Gait inability [None]
  - Confusional state [None]
  - Unresponsive to stimuli [None]
  - Dizziness [None]
  - Blood pressure decreased [None]

NARRATIVE: CASE EVENT DATE: 20171104
